FAERS Safety Report 6842741-2 (Version None)
Quarter: 2010Q3

REPORT INFORMATION
  Report Type: 
  Country: None (occurrence: None)
  Receive Date: 20100714
  Receipt Date: 20070807
  Transmission Date: 20110219
  Serious: No
  Sender: FDA-Public Use
  Company Number: US-PFIZER INC-2007065980

PATIENT
  Sex: Male

DRUGS (3)
  1. CHANTIX [Suspect]
     Dates: start: 20070101
  2. ANTIGLAUCOMA PREPARATIONS AND MIOTICS [Concomitant]
     Indication: GLAUCOMA
  3. ALLERGENS [Concomitant]

REACTIONS (6)
  - ANXIETY [None]
  - DECREASED APPETITE [None]
  - FATIGUE [None]
  - MIDDLE INSOMNIA [None]
  - NIGHTMARE [None]
  - SLEEP DISORDER [None]
